FAERS Safety Report 9268847 (Version 1)
Quarter: 2013Q2

REPORT INFORMATION
  Report Type: Spontaneous
  Country: US (occurrence: US)
  Receive Date: 20130502
  Receipt Date: 20130502
  Transmission Date: 20140414
  Serious: No
  Sender: FDA-Public Use
  Company Number: US-ASTRAZENECA-2013SE25859

PATIENT
  Age: 74 Year
  Sex: Female
  Weight: 90.7 kg

DRUGS (3)
  1. NEXIUM [Suspect]
     Indication: GASTROOESOPHAGEAL REFLUX DISEASE
     Route: 048
     Dates: start: 2010
  2. NEXIUM [Suspect]
     Indication: HIATUS HERNIA
     Route: 048
     Dates: start: 2010
  3. SEVERAL OTHER STOMACH MEDICATIONS [Concomitant]
     Indication: GASTRIC DISORDER

REACTIONS (3)
  - Dysphagia [Unknown]
  - Malaise [Unknown]
  - Intentional drug misuse [Unknown]
